FAERS Safety Report 8788155 (Version 2)
Quarter: 2015Q2

REPORT INFORMATION
  Report Type: Report from Study
  Country: US (occurrence: US)
  Receive Date: 20120914
  Receipt Date: 20150618
  Transmission Date: 20150821
  Serious: Yes (Death)
  Sender: FDA-Public Use
  Company Number: US-ROCHE-1126591

PATIENT
  Sex: Male
  Weight: 68 kg

DRUGS (14)
  1. PHENERGAN [Concomitant]
     Active Substance: PROMETHAZINE HYDROCHLORIDE
  2. MORPHINE [Concomitant]
     Active Substance: MORPHINE
     Route: 042
  3. ARANESP [Concomitant]
     Active Substance: DARBEPOETIN ALFA
  4. POTASSIUM CHLORIDE. [Concomitant]
     Active Substance: POTASSIUM CHLORIDE
     Dosage: 60 (UNIT NOT REPORTED)
     Route: 065
  5. CISPLATIN. [Concomitant]
     Active Substance: CISPLATIN
  6. XELODA [Concomitant]
     Active Substance: CAPECITABINE
     Route: 065
  7. MORPHINE [Concomitant]
     Active Substance: MORPHINE
     Route: 042
  8. AVASTIN [Suspect]
     Active Substance: BEVACIZUMAB
     Indication: OESOPHAGEAL CARCINOMA
     Route: 065
     Dates: start: 20050426
  9. AVASTIN [Suspect]
     Active Substance: BEVACIZUMAB
     Route: 065
  10. DEXAMETHASONE. [Concomitant]
     Active Substance: DEXAMETHASONE
     Route: 065
  11. TAXOTERE [Concomitant]
     Active Substance: DOCETAXEL
     Route: 065
  12. TAXOTERE [Concomitant]
     Active Substance: DOCETAXEL
     Route: 065
  13. TAXOTERE [Concomitant]
     Active Substance: DOCETAXEL
     Route: 065
  14. MAGNESIUM CHLORIDE. [Concomitant]
     Active Substance: MAGNESIUM CHLORIDE
     Dosage: 3 (UNIT NOT REPORTED)
     Route: 065

REACTIONS (2)
  - Death [Fatal]
  - Off label use [Unknown]
